FAERS Safety Report 9304871 (Version 2)
Quarter: 2013Q2

REPORT INFORMATION
  Report Type: Spontaneous
  Country: IN (occurrence: None)
  Receive Date: 20130521
  Receipt Date: 20130611
  Transmission Date: 20140414
  Serious: Yes (Death, Other)
  Sender: FDA-Public Use
  Company Number: AUR-APL-2013-04158

PATIENT
  Age: 46 Year
  Sex: Male

DRUGS (5)
  1. NEVIRAPINE [Suspect]
     Indication: HIV INFECTION
  2. TRIMETHOPRIM+SULFAMETHOXAZOLE [Suspect]
     Indication: HIV INFECTION
  3. LAMIVUDINE [Suspect]
     Indication: HIV INFECTION
     Dosage: (150 MG,2 IN 1 D)
  4. STAVUDINE [Suspect]
     Indication: HIV INFECTION
  5. ZIDOVUDINE [Suspect]
     Indication: HIV INFECTION

REACTIONS (3)
  - Stevens-Johnson syndrome [None]
  - Anaemia [None]
  - Hepatotoxicity [None]
